FAERS Safety Report 4481435-8 (Version None)
Quarter: 2004Q3

REPORT INFORMATION
  Report Type: 
  Country: None (occurrence: None)
  Receive Date: 20040923
  Receipt Date: 20040723
  Transmission Date: 20050211
  Serious: No
  Sender: FDA-Public Use
  Company Number: USA040773482

PATIENT
  Age: 60 Year
  Sex: Female

DRUGS (6)
  1. FORTEO [Suspect]
     Indication: OSTEOPOROSIS
     Dosage: 20 UG DAY
     Dates: start: 20030901
  2. FLOVENT [Concomitant]
  3. ESTRATEST [Concomitant]
  4. THEOPHYLLINE [Concomitant]
  5. COMBIVENT [Concomitant]
  6. ALBUTEROL [Concomitant]

REACTIONS (2)
  - BONE DENSITY DECREASED [None]
  - DYSPNOEA [None]
